FAERS Safety Report 5228832-0 (Version None)
Quarter: 2007Q2

REPORT INFORMATION
  Report Type: 
  Country: None (occurrence: None)
  Receive Date: 20070131
  Receipt Date: 20070118
  Transmission Date: 20071010
  Serious: Yes (Congenital Anomaly)
  Sender: FDA-Public Use
  Company Number: 8020987

PATIENT
  Age: 6 Month
  Sex: Female
  Weight: 8.1 kg

DRUGS (4)
  1. KEPPRA [Suspect]
     Dosage: TRP
     Route: 064
     Dates: start: 20060203
  2. KEPPRA [Suspect]
     Dosage: 4 DF /D TRP
     Route: 064
     Dates: start: 20060221
  3. VITAMINS [Concomitant]
  4. RHOGAM [Concomitant]

REACTIONS (2)
  - ACROCHORDON [None]
  - DRUG EXPOSURE DURING PREGNANCY [None]
